FAERS Safety Report 12422302 (Version 4)
Quarter: 2018Q4

REPORT INFORMATION
  Report Type: Spontaneous
  Country: US (occurrence: US)
  Receive Date: 20160601
  Receipt Date: 20181120
  Transmission Date: 20190204
  Serious: No
  Sender: FDA-Public Use
  Company Number: US-JNJFOC-20150516698

PATIENT
  Age: 67 Year
  Sex: Female

DRUGS (23)
  1. IMBRUVICA [Suspect]
     Active Substance: IBRUTINIB
     Indication: CHRONIC LYMPHOCYTIC LEUKAEMIA
     Route: 048
     Dates: start: 20151204
  2. LANTUS [Concomitant]
     Active Substance: INSULIN GLARGINE
  3. VITAMIN D [Concomitant]
     Active Substance: CHOLECALCIFEROL
  4. GLIMEPIRIDE. [Concomitant]
     Active Substance: GLIMEPIRIDE
  5. GLIPIZIDE. [Concomitant]
     Active Substance: GLIPIZIDE
  6. TRAJENTA [Concomitant]
     Active Substance: LINAGLIPTIN
  7. ATENOLOL. [Concomitant]
     Active Substance: ATENOLOL
  8. IMBRUVICA [Suspect]
     Active Substance: IBRUTINIB
     Indication: CHRONIC LYMPHOCYTIC LEUKAEMIA
     Route: 048
     Dates: start: 20140712, end: 201412
  9. IMBRUVICA [Suspect]
     Active Substance: IBRUTINIB
     Indication: CHRONIC LYMPHOCYTIC LEUKAEMIA
     Route: 048
     Dates: start: 20151203
  10. IMBRUVICA [Suspect]
     Active Substance: IBRUTINIB
     Indication: CHRONIC LYMPHOCYTIC LEUKAEMIA
     Route: 048
     Dates: start: 2015
  11. ZYRTEC [Concomitant]
     Active Substance: CETIRIZINE HYDROCHLORIDE
  12. SYNTHROID [Concomitant]
     Active Substance: LEVOTHYROXINE SODIUM
  13. FISH OIL [Concomitant]
     Active Substance: FISH OIL
  14. IMBRUVICA [Suspect]
     Active Substance: IBRUTINIB
     Indication: CHRONIC LYMPHOCYTIC LEUKAEMIA
     Route: 048
  15. ZOCOR [Concomitant]
     Active Substance: SIMVASTATIN
  16. TOPROL XL [Concomitant]
     Active Substance: METOPROLOL SUCCINATE
  17. IMBRUVICA [Suspect]
     Active Substance: IBRUTINIB
     Indication: CHRONIC LYMPHOCYTIC LEUKAEMIA
     Route: 048
     Dates: start: 20150502, end: 2015
  18. JANUVIA [Concomitant]
     Active Substance: SITAGLIPTIN PHOSPHATE
  19. ATORVASTATIN [Concomitant]
     Active Substance: ATORVASTATIN
  20. NOVOLOG [Concomitant]
     Active Substance: INSULIN ASPART
  21. ASPIRIN. [Concomitant]
     Active Substance: ASPIRIN
  22. BACTRIM [Concomitant]
     Active Substance: SULFAMETHOXAZOLE\TRIMETHOPRIM
  23. ELIQUIS [Concomitant]
     Active Substance: APIXABAN

REACTIONS (12)
  - Fatigue [Unknown]
  - Off label use [Unknown]
  - Incorrect dose administered [Unknown]
  - Gastroenteritis viral [Unknown]
  - Abdominal discomfort [Unknown]
  - Dizziness [Unknown]
  - Dyspepsia [Unknown]
  - Nausea [Unknown]
  - Seasonal allergy [Unknown]
  - Muscle spasms [Unknown]
  - Nasal congestion [Unknown]
  - Insomnia [Unknown]

NARRATIVE: CASE EVENT DATE: 2014
